FAERS Safety Report 20721949 (Version 1)
Quarter: 2022Q2

REPORT INFORMATION
  Report Type: Spontaneous
  Country: US (occurrence: None)
  Receive Date: 20220418
  Receipt Date: 20220418
  Transmission Date: 20220721
  Serious: Yes (Hospitalization)
  Sender: FDA-Public Use
  Company Number: None

PATIENT
  Age: 41 Year
  Sex: Female
  Weight: 67.5 kg

DRUGS (1)
  1. .DELTA.8-TETRAHYDROCANNABINOL\HERBALS [Suspect]
     Active Substance: .DELTA.8-TETRAHYDROCANNABINOL\HERBALS
     Indication: Stress
     Dosage: OTHER QUANTITY : 1 GUMMY;?
     Dates: start: 20220412, end: 20220412

REACTIONS (11)
  - Hypoaesthesia [None]
  - Paraesthesia [None]
  - Disorientation [None]
  - Hypotension [None]
  - Dizziness [None]
  - Tremor [None]
  - Dry mouth [None]
  - Dyskinesia [None]
  - Dysarthria [None]
  - Anxiety [None]
  - Adverse drug reaction [None]

NARRATIVE: CASE EVENT DATE: 20220412
